FAERS Safety Report 15230031 (Version 1)
Quarter: 2018Q3

REPORT INFORMATION
  Report Type: Spontaneous
  Country: US (occurrence: US)
  Receive Date: 20180802
  Receipt Date: 20180802
  Transmission Date: 20181010
  Serious: Yes (Other)
  Sender: FDA-Public Use
  Company Number: US-ACCORD-062735

PATIENT
  Age: 51 Year
  Sex: Female
  Weight: 111.13 kg

DRUGS (15)
  1. BENADRYL [Concomitant]
     Active Substance: DIPHENHYDRAMINE HYDROCHLORIDE
     Dosage: STRENGTH: 25 MG
  2. DECADRON [Concomitant]
     Active Substance: DEXAMETHASONE
     Dosage: STRENGTH: 4 MG
     Route: 048
  3. PROCHLORPERAZINE. [Concomitant]
     Active Substance: PROCHLORPERAZINE
     Dosage: STRENGTH: 10 MG
  4. CYTOXAN [Suspect]
     Active Substance: CYCLOPHOSPHAMIDE
     Indication: BREAST CANCER STAGE III
     Dosage: 1326 MG AT EVERY 3 WEEKS
     Route: 042
     Dates: start: 20150714, end: 20150915
  5. CLINDAMYCIN. [Concomitant]
     Active Substance: CLINDAMYCIN
     Dosage: STRENGTH: 300 MG
  6. SANCUSO [Concomitant]
     Active Substance: GRANISETRON
     Dosage: STRENGTH: 3.1 MG/24 HOUR
  7. VENLAFAXINE/VENLAFAXINE HYDROCHLORIDE [Concomitant]
     Dosage: STRENGTH: 75 MG
  8. DOCETAXEL ACCORD [Suspect]
     Active Substance: DOCETAXEL
     Indication: BREAST CANCER STAGE III
     Dosage: 165.8 MG AT EVERY 3 WEEKS
     Route: 042
     Dates: start: 20150714, end: 20150915
  9. PERCOCET [Concomitant]
     Active Substance: ACETAMINOPHEN\OXYCODONE HYDROCHLORIDE
     Dosage: STRENGTH: 5?325 MG?TAKE 1 TABLET BY ORAL ROUTE EVERY 4 HOURS AS NEEDED FOR 10 DAYS
     Route: 048
  10. EMLA [Concomitant]
     Active Substance: LIDOCAINE\PRILOCAINE
     Dosage: STRENGTH: 2.5 %?2.5 % TOPICAL CREAM
     Route: 061
  11. TYLENOL WITH CODEINE [Concomitant]
     Active Substance: ACETAMINOPHEN\CODEINE PHOSPHATE
     Dosage: STRENGTH: 300 MG? 30 MG
  12. VALIUM [Concomitant]
     Active Substance: DIAZEPAM
     Dosage: STRENGTH: 5 MG
  13. ERGOCALCIFEROL. [Concomitant]
     Active Substance: ERGOCALCIFEROL
     Dosage: STRENGTH: 50000 UNIT
  14. DIAZEPAM. [Concomitant]
     Active Substance: DIAZEPAM
     Dosage: STRENGTH: 5 MG ?1 TABLET PO Q8HRS PRN
     Route: 048
     Dates: start: 20150617
  15. ALOXI [Concomitant]
     Active Substance: PALONOSETRON HYDROCHLORIDE
     Route: 042

REACTIONS (1)
  - Alopecia [Not Recovered/Not Resolved]

NARRATIVE: CASE EVENT DATE: 20151001
